FAERS Safety Report 8388553-2 (Version None)
Quarter: 2012Q2

REPORT INFORMATION
  Report Type: 
  Country: None (occurrence: None)
  Receive Date: 20120525
  Receipt Date: 20120516
  Transmission Date: 20120825
  Serious: Yes (Other)
  Sender: FDA-Public Use
  Company Number: ES-AMGEN-ESPSP2012031841

PATIENT
  Age: 61 Year
  Sex: Male
  Weight: 68.2 kg

DRUGS (8)
  1. ALLOPURINOL [Concomitant]
     Indication: BLOOD URIC ACID INCREASED
     Dosage: 100 MG, 1/24H
     Route: 048
  2. HEMOVAS [Concomitant]
     Indication: CARDIOVASCULAR DISORDER
     Dosage: 600 MG, 1/12H
     Route: 048
  3. SUMADOL [Concomitant]
     Indication: PAIN
     Dosage: 1 MG, 2 OR 3 PER DAY AS NEEDED
     Route: 048
  4. ESOMEPRAZOLE MAGNESIUM [Concomitant]
     Indication: GASTRITIS PROPHYLAXIS
     Dosage: 40 MG, 1/12H
     Route: 048
     Dates: start: 20120501
  5. ENBREL [Suspect]
     Indication: ANKYLOSING SPONDYLITIS
     Dosage: 50 MG, WEEKLY
     Route: 058
     Dates: start: 20111212, end: 20120416
  6. TRAMADOL HYDROCHLORIDE [Concomitant]
     Indication: PAIN
     Dosage: 100 MG, IN BREAKFAST
     Route: 048
  7. TRAMADOL HYDROCHLORIDE [Concomitant]
     Dosage: 150 MG, IN DINNER
     Route: 048
  8. CELECOXIB [Concomitant]
     Indication: ANTIINFLAMMATORY THERAPY
     Dosage: 200 MG, UNK
     Route: 048
     Dates: end: 20120419

REACTIONS (2)
  - ABDOMINAL PAIN UPPER [None]
  - GASTRIC ULCER [None]
